FAERS Safety Report 20568589 (Version 3)
Quarter: 2022Q2

REPORT INFORMATION
  Report Type: Spontaneous
  Country: CA (occurrence: CA)
  Receive Date: 20220308
  Receipt Date: 20220526
  Transmission Date: 20220721
  Serious: Yes (Other)
  Sender: FDA-Public Use
  Company Number: CA-PFIZER INC-202200333395

PATIENT
  Age: 68 Year
  Sex: Female

DRUGS (3)
  1. RITUXIMAB [Suspect]
     Active Substance: RITUXIMAB
     Indication: Rheumatoid arthritis
     Dosage: 1 DF FOR 1 YEAR,  DOSAGE INFO IS NOT AVAILABLE
  2. RITUXIMAB [Suspect]
     Active Substance: RITUXIMAB
     Dosage: 1 DF FOR 1 YEAR,  DOSAGE INFO IS NOT AVAILABLE
     Dates: end: 202108
  3. HYDROXYCHLOROQUINE [Concomitant]
     Active Substance: HYDROXYCHLOROQUINE
     Dosage: 300 MG, 1X/DAY
     Route: 048

REACTIONS (5)
  - Meningitis [Unknown]
  - Seizure [Unknown]
  - Therapy non-responder [Unknown]
  - Herpes zoster [Unknown]
  - Malaise [Unknown]
